FAERS Safety Report 18597488 (Version 2)
Quarter: 2021Q2

REPORT INFORMATION
  Report Type: Spontaneous
  Country: CZ (occurrence: CZ)
  Receive Date: 20201210
  Receipt Date: 20210417
  Transmission Date: 20210717
  Serious: Yes (Other)
  Sender: FDA-Public Use
  Company Number: CZ-AMGEN-CZESP2020200263

PATIENT
  Sex: Female

DRUGS (2)
  1. TRIPTAN [ZOLMITRIPTAN] [Concomitant]
     Active Substance: ZOLMITRIPTAN
     Indication: PRODUCT USED FOR UNKNOWN INDICATION
     Dosage: UNK
     Route: 065
  2. AIMOVIG [Suspect]
     Active Substance: ERENUMAB-AOOE
     Indication: MIGRAINE
     Dosage: UNK
     Route: 065
     Dates: start: 20200428

REACTIONS (7)
  - Immunoglobulins abnormal [Not Recovered/Not Resolved]
  - Secretion discharge [Not Recovered/Not Resolved]
  - Meningitis [Unknown]
  - Pyrexia [Unknown]
  - Erythema migrans [Unknown]
  - Tension headache [Unknown]
  - Blood brain barrier defect [Unknown]
